FAERS Safety Report 5846593-9 (Version None)
Quarter: 2008Q3

REPORT INFORMATION
  Report Type: 
  Country: None (occurrence: None)
  Receive Date: 20080815
  Receipt Date: 20080808
  Transmission Date: 20090109
  Serious: Yes (Hospitalization, Other)
  Sender: FDA-Public Use
  Company Number: JP-ABBOTT-08P-087-0462169-00

PATIENT
  Age: 56 Year
  Sex: Male
  Weight: 58 kg

DRUGS (16)
  1. CLARITHROMYCIN [Suspect]
     Indication: PULMONARY GRANULOMA
     Dosage: NOT REPORTED
     Route: 048
     Dates: start: 20030101, end: 20051201
  2. CLARITHROMYCIN [Suspect]
     Dates: start: 20060401, end: 20060502
  3. ITRACONAZOLE [Suspect]
     Indication: PULMONARY GRANULOMA
     Route: 048
     Dates: start: 20060401, end: 20060512
  4. ITRACONAZOLE [Suspect]
     Route: 048
  5. METHYLPREDNISOLONE 16MG TAB [Concomitant]
     Indication: BRONCHOPULMONARY ASPERGILLOSIS
     Route: 048
     Dates: start: 20060401
  6. BACTRIM [Concomitant]
     Indication: PROPHYLAXIS
     Route: 048
     Dates: start: 20060323
  7. TEPRENONE [Concomitant]
     Indication: PROPHYLAXIS
     Route: 048
     Dates: start: 20060323
  8. THEOPHYLLINE [Concomitant]
     Indication: ASTHMA
     Route: 048
     Dates: start: 20060228
  9. TULOBUTEROL [Concomitant]
     Indication: ASTHMA
     Dates: start: 20060228
  10. BECLOMETHASONE DIPROPIONATE [Concomitant]
     Indication: ASTHMA
     Route: 055
     Dates: start: 20060228
  11. ERYTHROMYCIN [Concomitant]
     Indication: BRONCHOPULMONARY ASPERGILLOSIS ALLERGIC
     Dosage: NOT REPORTED
  12. VORICONAZOLE [Concomitant]
     Indication: BRONCHOPULMONARY ASPERGILLOSIS ALLERGIC
     Dosage: NOT REPORTED
  13. MICAFUNGIN SODIUM [Concomitant]
     Indication: DRUG USE FOR UNKNOWN INDICATION
     Dosage: NOT REPORTED
  14. STEROIDS [Concomitant]
     Dosage: NOT REPORTED
  15. SUPLATAST TOSILATE [Concomitant]
     Indication: ASTHMA
     Route: 048
  16. ALLOPURINOL [Concomitant]
     Indication: HYPERURICAEMIA
     Route: 048
     Dates: end: 20051201

REACTIONS (1)
  - HEPATIC FUNCTION ABNORMAL [None]
